FAERS Safety Report 21483756 (Version 1)
Quarter: 2022Q4

REPORT INFORMATION
  Report Type: Spontaneous
  Country: DK (occurrence: DK)
  Receive Date: 20221020
  Receipt Date: 20221020
  Transmission Date: 20230113
  Serious: Yes (Other)
  Sender: FDA-Public Use
  Company Number: None

PATIENT
  Age: 8 Decade
  Sex: Female

DRUGS (6)
  1. CYCLOPHOSPHAMIDE [Suspect]
     Active Substance: CYCLOPHOSPHAMIDE
     Indication: B-cell lymphoma
     Dosage: DOSAGE: UNKNOWN. STRENGTH: UNKNOWN. ADMINISTERED AS PART OF R-CHOP PROTOCOL. STOP DATE: FALL 2016
     Route: 065
     Dates: start: 20160609, end: 2016
  2. ADRIAMYCIN [Suspect]
     Active Substance: DOXORUBICIN HYDROCHLORIDE
     Indication: B-cell lymphoma
     Dosage: DOSAGE: UNKNOWN. STRENGTH: UNKNOWN. ADMINISTERED AS PART OF R-CHOP PROTOCOL. STOP DATE: FALL 2016
     Route: 065
     Dates: start: 20160609, end: 2016
  3. ONCOVIN [Suspect]
     Active Substance: VINCRISTINE SULFATE
     Indication: B-cell lymphoma
     Dosage: DOSAGE: UNKNOWN. STRENGTH: 1 MG/ML. ADMINISTERED AS PART OF R-CHOP PROTOCOL. STOP DATE: FALL 2016
     Route: 065
     Dates: start: 20160609, end: 2016
  4. ETOPOSIDE [Suspect]
     Active Substance: ETOPOSIDE
     Indication: Haemophagocytic lymphohistiocytosis
     Dosage: DOSAGE: 150 MG/M2 ADMINISTERED AT UNKNOWN INTERVALS. STRENGTH: 20 MG/ML. STOP DATE: FALL 2016
     Route: 065
     Dates: start: 20160603, end: 2016
  5. MABTHERA [Suspect]
     Active Substance: RITUXIMAB
     Indication: B-cell lymphoma
     Dosage: DOSAGE: UNKNOWN. STRENGTH: UNKNOWN. ADMINISTERED AS PART OF R-CHOP PROTOCOL. STOP DATE: FALL 2016
     Route: 065
     Dates: start: 20160609, end: 2016
  6. PREDNISOLONE [Suspect]
     Active Substance: PREDNISOLONE
     Indication: B-cell lymphoma
     Dosage: DOSAGE: UNKNOWN. STRENGTH: UNKNOWN. ADMINISTERED AS PART OF R-CHOP PROTOCOL. STOP DATE: FALL 2016, D
     Route: 048
     Dates: start: 20160609, end: 2016

REACTIONS (12)
  - Greater trochanteric pain syndrome [Unknown]
  - Arteriosclerosis [Not Recovered/Not Resolved]
  - Back pain [Unknown]
  - Rheumatoid arthritis [Not Recovered/Not Resolved]
  - Spinal stenosis [Unknown]
  - Night sweats [Unknown]
  - Back disorder [Not Recovered/Not Resolved]
  - Malignant melanoma [Recovered/Resolved]
  - Osteoarthritis [Not Recovered/Not Resolved]
  - Arthralgia [Unknown]
  - Cardiomyopathy [Not Recovered/Not Resolved]
  - Headache [Unknown]

NARRATIVE: CASE EVENT DATE: 20170101
